FAERS Safety Report 18932793 (Version 1)
Quarter: 2021Q1

REPORT INFORMATION
  Report Type: Spontaneous
  Country: US (occurrence: US)
  Receive Date: 20210223
  Receipt Date: 20210223
  Transmission Date: 20210420
  Serious: Yes (Other)
  Sender: FDA-Public Use
  Company Number: None

PATIENT
  Age: 78 Year
  Sex: Female
  Weight: 70.8 kg

DRUGS (1)
  1. GAMUNEX?C [Suspect]
     Active Substance: HUMAN IMMUNOGLOBULIN G
     Indication: HYPOGAMMAGLOBULINAEMIA
     Dosage: ?          OTHER FREQUENCY:ONCE;?
     Route: 042
     Dates: start: 20210207, end: 20210207

REACTIONS (7)
  - Chills [None]
  - Pruritus [None]
  - Erythema [None]
  - Rash [None]
  - Urticaria [None]
  - Infusion related reaction [None]
  - Swelling of eyelid [None]

NARRATIVE: CASE EVENT DATE: 20210207
